FAERS Safety Report 20291794 (Version 1)
Quarter: 2022Q1

REPORT INFORMATION
  Report Type: Spontaneous
  Country: EG (occurrence: EG)
  Receive Date: 20220104
  Receipt Date: 20220104
  Transmission Date: 20220423
  Serious: Yes (Death)
  Sender: FDA-Public Use
  Company Number: EG-PFIZER INC-202101292269

PATIENT
  Age: 63 Year
  Sex: Female

DRUGS (2)
  1. IBRANCE [Suspect]
     Active Substance: PALBOCICLIB
     Indication: Breast cancer female
     Dosage: 125 MG, CYCLIC (FROM D1 TO D21 THEN ONE WEEK OFF)
     Route: 048
     Dates: start: 20210707
  2. MAXICAL [Concomitant]
     Dosage: 1 DF, DAILY (ONE TAB DAILY CONTINUOUSLY)

REACTIONS (5)
  - Death [Fatal]
  - Abdominal pain upper [Unknown]
  - Bone pain [Unknown]
  - Skin discolouration [Unknown]
  - Immune system disorder [Unknown]
